FAERS Safety Report 5141939-1 (Version None)
Quarter: 2006Q4

REPORT INFORMATION
  Report Type: 
  Country: None (occurrence: None)
  Receive Date: 20061102
  Receipt Date: 20061017
  Transmission Date: 20070319
  Serious: Yes (Hospitalization)
  Sender: FDA-Public Use
  Company Number: PHEH2006US13126

PATIENT
  Age: 42 Year
  Sex: Male
  Weight: 190.48 kg

DRUGS (22)
  1. BENICAR HCT [Concomitant]
     Dosage: 40/25
  2. VYTORIN [Concomitant]
     Dosage: 10/20
  3. NORVASC [Concomitant]
     Dosage: 5 MG, UNK
  4. NEXIUM [Concomitant]
     Dosage: 40 MG, UNK
  5. ACTOS [Concomitant]
     Dosage: 30 MG, UNK
  6. LANTUS [Concomitant]
     Dosage: 45 U, UNK
  7. METFORMIN HCL [Concomitant]
     Dosage: 1000 MG, BID
  8. SODIUM CHLORIDE [Concomitant]
     Dosage: 2 G, UNK
  9. LAMICTAL [Concomitant]
     Dosage: 112 MG, BID
  10. CLONAZEPAM [Concomitant]
     Dosage: 0.5 MG, QID
  11. FLOMAX [Concomitant]
     Dosage: 0.8 MG, UNK
  12. CYMBALTA [Concomitant]
     Dosage: 30 MG, UNK
  13. ACETAZOLAMIDE [Concomitant]
     Dosage: 500 MG, TID
  14. TOPAMAX [Concomitant]
     Dosage: 100 UNK, UNK
  15. SEROQUEL [Concomitant]
     Dosage: 750 UNK, UNK
  16. MORPHINE SULFATE [Concomitant]
     Dosage: 60 MG, TID PRN
  17. TEMAZEPAM [Concomitant]
     Dosage: 30 MG, UNK
  18. FUROSEMIDE [Concomitant]
     Dosage: 40 MG, UNK
  19. PROMETHAZINE [Concomitant]
     Dosage: 25 MG, 3 TABS
  20. HYDROMORPHONE HCL [Concomitant]
     Dosage: 8 MG, PRN
  21. PERPHENAZINE [Concomitant]
     Dosage: 16 MG, UNK
  22. TRILEPTAL [Suspect]
     Indication: CONVULSION
     Dosage: 600 MG, BID
     Route: 048
     Dates: start: 20061012, end: 20061016

REACTIONS (3)
  - ANURIA [None]
  - HYPONATRAEMIA [None]
  - TACHYPNOEA [None]
